FAERS Safety Report 4964757-3 (Version None)
Quarter: 2006Q2

REPORT INFORMATION
  Report Type: 
  Country: None (occurrence: None)
  Receive Date: 20060406
  Receipt Date: 20060125
  Transmission Date: 20061013
  Serious: Yes (Hospitalization, Other)
  Sender: FDA-Public Use
  Company Number: US-MERCK-0602USA03478

PATIENT
  Age: 60 Year
  Sex: Female

DRUGS (1)
  1. VIOXX [Suspect]
     Route: 001

REACTIONS (10)
  - BREAST CANCER [None]
  - CARDIAC FAILURE CONGESTIVE [None]
  - CEREBROVASCULAR ACCIDENT [None]
  - DIABETES MELLITUS [None]
  - HYPERTENSION [None]
  - MUSCLE STRAIN [None]
  - NON-CARDIAC CHEST PAIN [None]
  - OBESITY [None]
  - OSTEOARTHRITIS [None]
  - VENTRICULAR DYSFUNCTION [None]
